FAERS Safety Report 10239396 (Version 2)
Quarter: 2014Q4

REPORT INFORMATION
  Report Type: Spontaneous
  Country: US (occurrence: US)
  Receive Date: 20140616
  Receipt Date: 20141201
  Transmission Date: 20150528
  Serious: Yes (Life-Threatening, Hospitalization, Disabling, Other)
  Sender: FDA-Public Use
  Company Number: US-BAYER-2014-088748

PATIENT
  Age: 19 Year
  Sex: Female
  Weight: 60.32 kg

DRUGS (1)
  1. MIRENA [Suspect]
     Active Substance: LEVONORGESTREL
     Indication: CONTRACEPTION
     Dosage: 20 MCG/24HR, CONT
     Route: 015
     Dates: start: 20100622, end: 20100923

REACTIONS (10)
  - Uterine perforation [None]
  - Balance disorder [None]
  - Genital haemorrhage [None]
  - General physical health deterioration [None]
  - Injury [None]
  - Procedural pain [None]
  - Device issue [None]
  - Post procedural infection [None]
  - Device dislocation [None]
  - Abdominal pain lower [None]

NARRATIVE: CASE EVENT DATE: 20100802
